FAERS Safety Report 5387338-9 (Version None)
Quarter: 2007Q3

REPORT INFORMATION
  Report Type: 
  Country: None (occurrence: None)
  Receive Date: 20070716
  Receipt Date: 20070704
  Transmission Date: 20080115
  Serious: Yes (Hospitalization, Other)
  Sender: FDA-Public Use
  Company Number: PHFR2007IE01979

PATIENT
  Age: 31 Year
  Sex: Female

DRUGS (4)
  1. CLOZARIL [Suspect]
     Indication: SCHIZOPHRENIA
     Dosage: 10MG/DAY
     Route: 048
     Dates: start: 20070525
  2. CLOZARIL [Suspect]
     Dosage: 75 MG, BID
     Route: 048
     Dates: start: 20070606, end: 20070623
  3. LAMICTAL [Concomitant]
     Route: 065
  4. HALOPERIDOL [Concomitant]
     Dosage: 75 MG, BID
     Route: 048

REACTIONS (7)
  - CIRCULATORY COLLAPSE [None]
  - CONVULSION [None]
  - ENURESIS [None]
  - EPILEPSY [None]
  - HYPOTENSION [None]
  - LOSS OF CONSCIOUSNESS [None]
  - SYNCOPE [None]
